FAERS Safety Report 24322438 (Version 2)
Quarter: 2024Q4

REPORT INFORMATION
  Report Type: Spontaneous
  Country: NL (occurrence: NL)
  Receive Date: 20240916
  Receipt Date: 20241019
  Transmission Date: 20250114
  Serious: Yes (Hospitalization, Other)
  Sender: CELLTRION
  Company Number: NL-ROCHE-3526999

PATIENT

DRUGS (17)
  1. BEVACIZUMAB [Suspect]
     Active Substance: BEVACIZUMAB
     Indication: Non-small cell lung cancer
     Route: 065
  2. ATEZOLIZUMAB [Suspect]
     Active Substance: ATEZOLIZUMAB
     Indication: Non-small cell lung cancer
     Route: 065
  3. PACLITAXEL [Suspect]
     Active Substance: PACLITAXEL
     Indication: Non-small cell lung cancer
     Dosage: UNK
     Route: 065
  4. CARBOPLATIN [Suspect]
     Active Substance: CARBOPLATIN
     Indication: Non-small cell lung cancer
     Route: 065
  5. FUROSEMIDE [Concomitant]
     Active Substance: FUROSEMIDE
  6. METOPROLOL [Concomitant]
     Active Substance: METOPROLOL
     Indication: Hypertension
     Route: 065
  7. METOPROLOL [Concomitant]
     Active Substance: METOPROLOL
     Indication: Atrial tachycardia
  8. METOPROLOL [Concomitant]
     Active Substance: METOPROLOL
     Indication: Palpitations
  9. METOPROLOL [Concomitant]
     Active Substance: METOPROLOL
     Indication: Supraventricular extrasystoles
  10. AMLODIPINE [Concomitant]
     Active Substance: AMLODIPINE BESYLATE
     Indication: Hypertension
     Route: 065
  11. AMLODIPINE [Concomitant]
     Active Substance: AMLODIPINE BESYLATE
     Indication: Atrial tachycardia
  12. AMLODIPINE [Concomitant]
     Active Substance: AMLODIPINE BESYLATE
     Indication: Palpitations
  13. AMLODIPINE [Concomitant]
     Active Substance: AMLODIPINE BESYLATE
     Indication: Supraventricular extrasystoles
  14. ALDESLEUKIN [Concomitant]
     Active Substance: ALDESLEUKIN
     Dosage: 600000 INTERNATIONAL UNIT/KILOGRAM, Q8H / (600 000 IU/ KG/DOSE) EVERY 8 H, WITH THE FIRST DOSE ~4 H
     Route: 042
  15. CYCLOPHOSPHAMIDE [Concomitant]
     Active Substance: CYCLOPHOSPHAMIDE
     Dosage: 60 MILLIGRAM/KILOGRAM (2 DAYS)
     Route: 065
  16. LYMPHOCYTES [Concomitant]
     Active Substance: LYMPHOCYTES
     Route: 042
  17. FLUDARABINE [Concomitant]
     Active Substance: FLUDARABINE PHOSPHATE
     Dosage: 25 MILLIGRAM/SQ. METER (5 DAYS)
     Route: 065

REACTIONS (7)
  - Pulmonary congestion [Recovered/Resolved]
  - Non-small cell lung cancer metastatic [Recovered/Resolved]
  - Pulmonary oedema [Recovered/Resolved]
  - Capillary leak syndrome [Recovered/Resolved]
  - Disease progression [Unknown]
  - Troponin T increased [Recovered/Resolved]
  - N-terminal prohormone brain natriuretic peptide increased [Recovered/Resolved]
